FAERS Safety Report 8573068-9 (Version None)
Quarter: 2012Q2

REPORT INFORMATION
  Report Type: 
  Country: None (occurrence: None)
  Receive Date: 20120423
  Receipt Date: 20090515
  Transmission Date: 20120825
  Serious: Yes (Death)
  Sender: FDA-Public Use
  Company Number: PHEH2009US12079

PATIENT
  Age: 79 Year
  Sex: Male

DRUGS (9)
  1. SODIUM BICARBONATE IN PLASTIC CONTAINER [Concomitant]
  2. ALLOPURINOL [Concomitant]
  3. HYDROXYUREA [Concomitant]
  4. POTASSIUM CHLORIDE [Concomitant]
  5. EXJADE [Suspect]
     Indication: IRON OVERLOAD
     Dosage: 500 MG, TID ORAL
     Route: 048
  6. EXJADE [Suspect]
     Indication: MYELODYSPLASTIC SYNDROME
     Dosage: 500 MG, TID ORAL
     Route: 048
  7. AMICAR [Concomitant]
  8. INSULIN (INSULIN) [Concomitant]
  9. FLONASE [Concomitant]

REACTIONS (7)
  - DISEASE PROGRESSION [None]
  - FATIGUE [None]
  - ANAEMIA [None]
  - DYSPNOEA [None]
  - PANCYTOPENIA [None]
  - DIZZINESS [None]
  - THROMBOCYTOPENIA [None]
